FAERS Safety Report 8818089 (Version 2)
Quarter: 2013Q1

REPORT INFORMATION
  Report Type: Spontaneous
  Country: US (occurrence: US)
  Receive Date: 20121001
  Receipt Date: 20130116
  Transmission Date: 20140127
  Serious: No
  Sender: FDA-Public Use
  Company Number: US-009507513-1209USA008493

PATIENT
  Age: 21 Year
  Sex: Female
  Weight: 90.7 kg

DRUGS (1)
  1. IMPLANON [Suspect]
     Indication: CONTRACEPTION
     Dosage: EVERY 3 YEARS
     Route: 059
     Dates: start: 20120326

REACTIONS (3)
  - Menstruation irregular [Unknown]
  - Alopecia [Unknown]
  - Implant site discolouration [Unknown]
